FAERS Safety Report 11810632 (Version 4)
Quarter: 2016Q1

REPORT INFORMATION
  Report Type: Spontaneous
  Country: US (occurrence: US)
  Receive Date: 20151208
  Receipt Date: 20160204
  Transmission Date: 20160525
  Serious: Yes (Other)
  Sender: FDA-Public Use
  Company Number: US-PFIZER INC-2015424602

PATIENT
  Age: 59 Year
  Sex: Female

DRUGS (1)
  1. XELJANZ [Suspect]
     Active Substance: TOFACITINIB CITRATE
     Indication: ARTHRALGIA
     Dosage: 5 MG, 2X/DAY
     Dates: start: 201511

REACTIONS (4)
  - Skin cancer [Unknown]
  - Ear discomfort [Unknown]
  - Bronchitis [Unknown]
  - Product use issue [Unknown]
